FAERS Safety Report 25454976 (Version 2)
Quarter: 2025Q3

REPORT INFORMATION
  Report Type: Spontaneous
  Country: US (occurrence: US)
  Receive Date: 20250619
  Receipt Date: 20250703
  Transmission Date: 20251021
  Serious: Yes (Life-Threatening, Hospitalization, Other)
  Sender: ALKEM
  Company Number: None

PATIENT
  Age: 38 Year
  Sex: Male
  Weight: 78 kg

DRUGS (3)
  1. QUETIAPINE FUMARATE [Suspect]
     Active Substance: QUETIAPINE FUMARATE
     Indication: Suicide attempt
     Route: 048
  2. AMLODIPINE BESYLATE [Suspect]
     Active Substance: AMLODIPINE BESYLATE
     Indication: Suicide attempt
     Route: 048
  3. FLUOXETINE [Suspect]
     Active Substance: FLUOXETINE HYDROCHLORIDE
     Indication: Suicide attempt
     Route: 048

REACTIONS (7)
  - Shock [Recovering/Resolving]
  - Vasoplegia syndrome [Recovering/Resolving]
  - Blood lactic acid increased [Recovering/Resolving]
  - Suicide attempt [Unknown]
  - Hypotension [Recovered/Resolved]
  - Intentional overdose [Unknown]
  - Toxicity to various agents [Recovering/Resolving]
